FAERS Safety Report 15578190 (Version 1)
Quarter: 2018Q4

REPORT INFORMATION
  Report Type: Spontaneous
  Country: US (occurrence: US)
  Receive Date: 20181029
  Receipt Date: 20181029
  Transmission Date: 20190205
  Serious: Yes (Other)
  Sender: FDA-Public Use
  Company Number: None

PATIENT

DRUGS (9)
  1. DICYCLOMINE [Concomitant]
     Active Substance: DICYCLOMINE HYDROCHLORIDE
  2. ATENOLO [Concomitant]
  3. HYDROCHLOROTHIAZIDE/LOSARTIN [Concomitant]
  4. CYCLOBENZAPRINE. [Concomitant]
     Active Substance: CYCLOBENZAPRINE
  5. OMEPRAZOLE. [Concomitant]
     Active Substance: OMEPRAZOLE
  6. PRALUENT [Suspect]
     Active Substance: ALIROCUMAB
  7. WARFIN [Concomitant]
     Active Substance: WARFARIN
  8. ASPIRIN 81MG [Concomitant]
     Active Substance: ASPIRIN
  9. NITROGLYCERIN. [Concomitant]
     Active Substance: NITROGLYCERIN

REACTIONS (8)
  - Fatigue [None]
  - Throat tightness [None]
  - Asthenia [None]
  - Choking [None]
  - Abdominal pain upper [None]
  - Chest discomfort [None]
  - Dysphonia [None]
  - Somnolence [None]

NARRATIVE: CASE EVENT DATE: 20180912
